FAERS Safety Report 20514347 (Version 1)
Quarter: 2022Q1

REPORT INFORMATION
  Report Type: Spontaneous
  Country: US (occurrence: US)
  Receive Date: 20220224
  Receipt Date: 20220224
  Transmission Date: 20220423
  Serious: No
  Sender: FDA-Public Use
  Company Number: US-VYERA PHARMACEUTICALS, LLC-2021VYE00040

PATIENT
  Age: 63 Year
  Sex: Female
  Weight: 53.524 kg

DRUGS (3)
  1. DARAPRIM [Suspect]
     Active Substance: PYRIMETHAMINE
     Indication: Eye infection toxoplasmal
     Dosage: 25 MG, 1X/DAY
     Route: 048
     Dates: start: 20210914
  2. LEUCOVORIN [Concomitant]
     Active Substance: LEUCOVORIN
  3. CLINDAMYCIN [Concomitant]
     Active Substance: CLINDAMYCIN
     Dosage: UNK

REACTIONS (3)
  - Fatigue [Recovering/Resolving]
  - Decreased appetite [Recovering/Resolving]
  - Off label use [Not Recovered/Not Resolved]

NARRATIVE: CASE EVENT DATE: 20210901
